FAERS Safety Report 7940796-5 (Version None)
Quarter: 2011Q4

REPORT INFORMATION
  Report Type: 
  Country: None (occurrence: None)
  Receive Date: 20111108
  Receipt Date: 20110525
  Transmission Date: 20120403
  Serious: Yes (Other)
  Sender: FDA-Public Use
  Company Number: PHHY2010US17574

PATIENT
  Sex: Female

DRUGS (4)
  1. ZOMETA [Suspect]
  2. VITAMIN D [Concomitant]
  3. LETROZOLE [Suspect]
  4. CALCIUM CARBONATE [Concomitant]

REACTIONS (7)
  - NEOPLASM MALIGNANT [None]
  - HOT FLUSH [None]
  - GAIT DISTURBANCE [None]
  - MUSCULOSKELETAL STIFFNESS [None]
  - PAIN [None]
  - FATIGUE [None]
  - MALAISE [None]
